FAERS Safety Report 10683326 (Version 3)
Quarter: 2015Q1

REPORT INFORMATION
  Report Type: Spontaneous
  Country: US (occurrence: US)
  Receive Date: 20141230
  Receipt Date: 20150325
  Transmission Date: 20150720
  Serious: Yes (Other)
  Sender: FDA-Public Use
  Company Number: US-GLAXOSMITHKLINE-US2014041395

PATIENT
  Age: 53 Year
  Sex: Female

DRUGS (2)
  1. IMITREX [Suspect]
     Active Substance: SUMATRIPTAN\SUMATRIPTAN SUCCINATE
     Indication: MIGRAINE
     Dosage: UNK
     Route: 048
     Dates: start: 1994
  2. IMITREX [Suspect]
     Active Substance: SUMATRIPTAN\SUMATRIPTAN SUCCINATE
     Indication: MIGRAINE
     Dosage: UNK, U
     Route: 045

REACTIONS (3)
  - Dysphagia [Unknown]
  - Atrial fibrillation [Unknown]
  - Breast cancer [Recovered/Resolved]

NARRATIVE: CASE EVENT DATE: 2014
